FAERS Safety Report 10729280 (Version 1)
Quarter: 2015Q1

REPORT INFORMATION
  Report Type: Spontaneous
  Country: US (occurrence: None)
  Receive Date: 20150120
  Receipt Date: 20150120
  Transmission Date: 20150721
  Serious: Yes (Hospitalization, Other)
  Sender: FDA-Public Use
  Company Number: None

PATIENT
  Age: 49 Year
  Sex: Female
  Weight: 79.38 kg

DRUGS (1)
  1. KEPPRA [Suspect]
     Active Substance: LEVETIRACETAM
     Indication: SEIZURE
     Dosage: KEPPRA TWICE DAILY TAKEN BY MOUTH
     Route: 048
     Dates: start: 20141114, end: 20150116

REACTIONS (6)
  - Cystitis [None]
  - Nausea [None]
  - Renal disorder [None]
  - Headache [None]
  - Myalgia [None]
  - Pain [None]
